FAERS Safety Report 7040399-3 (Version None)
Quarter: 2010Q4

REPORT INFORMATION
  Report Type: 
  Country: None (occurrence: None)
  Receive Date: 20101008
  Receipt Date: 20101008
  Transmission Date: 20110411
  Serious: Yes (Other)
  Sender: FDA-Public Use
  Company Number: None

PATIENT
  Sex: Female
  Weight: 72.5755 kg

DRUGS (1)
  1. ERYTHROMYCIN [Suspect]
     Indication: SUPERFICIAL INJURY OF EYE
     Dosage: ONE LAYER IN EYE POUCH EVERY 2 HRS
     Dates: start: 20100913, end: 20100922

REACTIONS (1)
  - CHROMATOPSIA [None]
